FAERS Safety Report 13095023 (Version 2)
Quarter: 2017Q1

REPORT INFORMATION
  Report Type: Spontaneous
  Country: IT (occurrence: IT)
  Receive Date: 20170106
  Receipt Date: 20170221
  Transmission Date: 20170428
  Serious: Yes (Hospitalization)
  Sender: FDA-Public Use
  Company Number: IT-ABBVIE-17P-083-1832669-00

PATIENT
  Age: 3 Year
  Sex: Male

DRUGS (2)
  1. SORICLAR [Suspect]
     Active Substance: CLARITHROMYCIN
     Indication: BRONCHITIS
     Dosage: 250MG/5ML FORM STRENGTH
     Route: 048
     Dates: start: 20161217
  2. SORICLAR [Suspect]
     Active Substance: CLARITHROMYCIN
     Indication: EAR INFECTION

REACTIONS (6)
  - Viral infection [Unknown]
  - Rash [Recovering/Resolving]
  - Eye swelling [Recovering/Resolving]
  - Ocular hyperaemia [Recovering/Resolving]
  - Hypersensitivity [Recovering/Resolving]
  - Urticaria [Recovering/Resolving]

NARRATIVE: CASE EVENT DATE: 20161218
